FAERS Safety Report 8069009-3 (Version None)
Quarter: 2011Q4

REPORT INFORMATION
  Report Type: 
  Country: None (occurrence: None)
  Receive Date: 20111221
  Receipt Date: 20110214
  Transmission Date: 20120403
  Serious: Yes (Other)
  Sender: FDA-Public Use
  Company Number: PHHY2011US07622

PATIENT
  Sex: Female
  Weight: 46 kg

DRUGS (6)
  1. NEUPOGEN [Concomitant]
  2. EXJADE [Suspect]
     Indication: NEOPLASM
     Dosage: 1500 MG, DAILY, ORAL
     Route: 048
     Dates: start: 20100601
  3. VIDAZA [Concomitant]
  4. ARANESP [Concomitant]
  5. VITAMIN B6 [Concomitant]
  6. LEVOTHYROXINE SODIUM [Concomitant]

REACTIONS (2)
  - DRUG INEFFECTIVE [None]
  - SERUM FERRITIN INCREASED [None]
